FAERS Safety Report 6835789-5 (Version None)
Quarter: 2010Q3

REPORT INFORMATION
  Report Type: 
  Country: None (occurrence: None)
  Receive Date: 20100712
  Receipt Date: 20100712
  Transmission Date: 20110219
  Serious: Yes (Hospitalization)
  Sender: FDA-Public Use
  Company Number: None

PATIENT
  Age: 54 Year
  Sex: Female
  Weight: 85.7298 kg

DRUGS (2)
  1. GABAPENTIN [Suspect]
     Indication: HYPOAESTHESIA
     Dosage: 1 AT BED . 1 2X DAY ON DAY 2 . 1 3X A DAY PO
     Route: 048
     Dates: start: 20100702, end: 20100703
  2. GABAPENTIN [Suspect]
     Indication: NERVE COMPRESSION
     Dosage: 1 AT BED . 1 2X DAY ON DAY 2 . 1 3X A DAY PO
     Route: 048
     Dates: start: 20100702, end: 20100703

REACTIONS (6)
  - BLADDER DISORDER [None]
  - HYPOAESTHESIA ORAL [None]
  - LIVER INJURY [None]
  - MALAISE [None]
  - PNEUMONIA [None]
  - SWELLING FACE [None]
